FAERS Safety Report 7896557-9 (Version None)
Quarter: 2011Q4

REPORT INFORMATION
  Report Type: 
  Country: None (occurrence: None)
  Receive Date: 20111104
  Receipt Date: 20111104
  Transmission Date: 20120403
  Serious: Yes (Other)
  Sender: FDA-Public Use
  Company Number: None

PATIENT
  Age: 70 Year
  Sex: Female
  Weight: 68.0396 kg

DRUGS (5)
  1. ESTROGEN 12.5 MG IMPLANT IN HIP [Suspect]
     Indication: MENOPAUSAL SYMPTOMS
     Dosage: ESTROGEN 12.5 MG HIP IMPLANTED
     Dates: start: 20110826
  2. ESTROGEN 12.5 MG IMPLANT IN HIP [Suspect]
     Indication: ARTIFICIAL MENOPAUSE
     Dosage: ESTROGEN 12.5 MG HIP IMPLANTED
     Dates: start: 20110826
  3. TESTOSTERONE [Suspect]
     Indication: MENOPAUSAL SYMPTOMS
     Dosage: TESTOSTERONE 125 HIP IMPLANTED
     Dates: start: 20110919
  4. PROGESTERONE [Suspect]
     Indication: ARTIFICIAL MENOPAUSE
     Dosage: PROGESTERONE 200 MG ORAL
     Route: 048
     Dates: start: 20110826
  5. PROGESTERONE [Suspect]
     Indication: ARTIFICIAL MENOPAUSE
     Dosage: PROGESTERONE 200 MG ORAL
     Route: 048
     Dates: start: 20110919

REACTIONS (4)
  - VULVOVAGINAL MYCOTIC INFECTION [None]
  - BURNING SENSATION [None]
  - NO THERAPEUTIC RESPONSE [None]
  - BREAST PAIN [None]
